FAERS Safety Report 22996751 (Version 5)
Quarter: 2024Q1

REPORT INFORMATION
  Report Type: Spontaneous
  Country: CA (occurrence: CA)
  Receive Date: 20230928
  Receipt Date: 20240326
  Transmission Date: 20240410
  Serious: Yes (Other)
  Sender: FDA-Public Use
  Company Number: CA-CELLTRION INC.-2022CA020119

PATIENT

DRUGS (10)
  1. INFLECTRA [Suspect]
     Active Substance: INFLIXIMAB-DYYB
     Indication: Crohn^s disease
     Dosage: 10MG/KG (715 MG), EVERY 8 WEEKS
     Route: 042
     Dates: start: 20220517
  2. INFLECTRA [Suspect]
     Active Substance: INFLIXIMAB-DYYB
     Indication: Colitis ulcerative
     Dosage: 720 MG (10 MG/KG), EVERY 8 WEEKS
     Route: 042
     Dates: start: 20220728
  3. INFLECTRA [Suspect]
     Active Substance: INFLIXIMAB-DYYB
     Dosage: 10 MG/KG, EVERY 8 WEEKS
     Route: 042
     Dates: start: 20220924
  4. INFLECTRA [Suspect]
     Active Substance: INFLIXIMAB-DYYB
     Dosage: 10 MG/KG (740 MG), EVERY 8 WEEKS
     Route: 042
     Dates: start: 20221119
  5. INFLECTRA [Suspect]
     Active Substance: INFLIXIMAB-DYYB
     Dosage: 750 MG, EVERY 8 WEEKS
     Route: 042
     Dates: start: 20221119
  6. INFLECTRA [Suspect]
     Active Substance: INFLIXIMAB-DYYB
     Dosage: 750 MG, EVERY 8 WEEKS
     Route: 042
     Dates: start: 20230114
  7. INFLECTRA [Suspect]
     Active Substance: INFLIXIMAB-DYYB
     Dosage: 750 MG, EVERY 8 WEEKS
     Route: 042
     Dates: start: 20230114
  8. INFLECTRA [Suspect]
     Active Substance: INFLIXIMAB-DYYB
     Dosage: 715MG (10MG/KG), EVERY 8 WEEKS
     Route: 042
     Dates: start: 20230404
  9. INFLECTRA [Suspect]
     Active Substance: INFLIXIMAB-DYYB
     Dosage: 715MG (10MG/KG), EVERY 8 WEEKS
     Route: 042
     Dates: start: 20230729
  10. INFLECTRA [Suspect]
     Active Substance: INFLIXIMAB-DYYB
     Dosage: 10 MG/KG, EVERY 8 WEEKS
     Route: 042
     Dates: start: 20240113

REACTIONS (13)
  - Road traffic accident [Unknown]
  - Jaw fracture [Unknown]
  - Craniofacial fracture [Unknown]
  - Oral surgery [Unknown]
  - Face injury [Unknown]
  - Loss of therapeutic response [Unknown]
  - Lymphadenopathy [Unknown]
  - Suspected COVID-19 [Unknown]
  - Throat irritation [Recovered/Resolved]
  - Influenza [Recovered/Resolved]
  - Off label use [Unknown]
  - Intentional product use issue [Unknown]
  - Inappropriate schedule of product administration [Unknown]

NARRATIVE: CASE EVENT DATE: 20220728
